FAERS Safety Report 20737431 (Version 1)
Quarter: 2022Q2

REPORT INFORMATION
  Report Type: Spontaneous
  Country: IR (occurrence: IR)
  Receive Date: 20220421
  Receipt Date: 20220421
  Transmission Date: 20220721
  Serious: Yes (Death, Hospitalization)
  Sender: FDA-Public Use
  Company Number: IR-STRIDES ARCOLAB LIMITED-2022SP004313

PATIENT
  Age: 144 Month
  Sex: Male

DRUGS (1)
  1. TRAMADOL [Suspect]
     Active Substance: TRAMADOL
     Indication: Product used for unknown indication
     Dosage: UNK, SELF-POISONING
     Route: 065
     Dates: start: 2011

REACTIONS (2)
  - Poisoning deliberate [Fatal]
  - Completed suicide [Fatal]

NARRATIVE: CASE EVENT DATE: 20110101
